FAERS Safety Report 23211508 (Version 1)
Quarter: 2023Q4

REPORT INFORMATION
  Report Type: Spontaneous
  Country: US (occurrence: US)
  Receive Date: 20231121
  Receipt Date: 20231121
  Transmission Date: 20240110
  Serious: No
  Sender: FDA-Public Use
  Company Number: US-BRIAN CONNER SVP QUALITY AND CHIEF COMPLIANCE OFFICER-2023XER02270

PATIENT
  Age: 34 Year
  Sex: Female
  Weight: 88.435 kg

DRUGS (1)
  1. GVOKE [Suspect]
     Active Substance: GLUCAGON
     Indication: Type 1 diabetes mellitus
     Dosage: 1 MG, ONCE, IN ABDOMEN, THEN TRIED IN THE ARM

REACTIONS (2)
  - Device delivery system issue [Unknown]
  - No adverse event [Unknown]

NARRATIVE: CASE EVENT DATE: 20231001
